FAERS Safety Report 20576563 (Version 1)
Quarter: 2022Q1

REPORT INFORMATION
  Report Type: Spontaneous
  Country: US (occurrence: None)
  Receive Date: 20220309
  Receipt Date: 20220309
  Transmission Date: 20220423
  Serious: Yes (Hospitalization)
  Sender: FDA-Public Use
  Company Number: None

PATIENT
  Sex: Female

DRUGS (1)
  1. STELARA [Suspect]
     Active Substance: USTEKINUMAB
     Indication: Psoriasis
     Dosage: 45/0.5 MG/ML?INJECT 1 PREFILLED SYRINGE (45 MG) UNDER THE SKIN (SUBCUTANEOUS INJECTION) EVERY 12 WEE
     Route: 058
     Dates: start: 20180419

REACTIONS (1)
  - Hospitalisation [None]
